FAERS Safety Report 8375337-4 (Version None)
Quarter: 2012Q2

REPORT INFORMATION
  Report Type: 
  Country: None (occurrence: None)
  Receive Date: 20120522
  Receipt Date: 20120510
  Transmission Date: 20120825
  Serious: No
  Sender: FDA-Public Use
  Company Number: US-BIOGENIDEC-2012BI016746

PATIENT
  Age: 48 Year
  Sex: Female

DRUGS (1)
  1. TYSABRI [Suspect]
     Indication: MULTIPLE SCLEROSIS
     Route: 042
     Dates: start: 20111027

REACTIONS (7)
  - ANXIETY [None]
  - ABDOMINAL DISCOMFORT [None]
  - PAIN [None]
  - POOR VENOUS ACCESS [None]
  - INFUSION SITE PAIN [None]
  - HEADACHE [None]
  - FEELING COLD [None]
